FAERS Safety Report 15401994 (Version 1)
Quarter: 2018Q3

REPORT INFORMATION
  Report Type: Report from Study
  Country: FR (occurrence: FR)
  Receive Date: 20180919
  Receipt Date: 20180919
  Transmission Date: 20181010
  Serious: Yes (Other)
  Sender: FDA-Public Use
  Company Number: FR-ROCHE-2181959

PATIENT
  Age: 77 Year
  Sex: Male
  Weight: 68.5 kg

DRUGS (63)
  1. AUGMENTIN [Concomitant]
     Active Substance: AMOXICILLIN\CLAVULANATE POTASSIUM
     Route: 048
     Dates: start: 20180622
  2. INNOHEP [Concomitant]
     Active Substance: TINZAPARIN SODIUM
     Route: 058
  3. LASILIX [Concomitant]
     Active Substance: FUROSEMIDE
     Route: 042
     Dates: start: 20180716, end: 20180717
  4. BINOCRIT [Concomitant]
     Active Substance: ERYTHROPOIETIN
     Route: 042
     Dates: start: 20180808
  5. DAFALGAN [Concomitant]
     Active Substance: ACETAMINOPHEN
     Indication: PAIN
     Route: 065
  6. RITUXIMAB. [Suspect]
     Active Substance: RITUXIMAB
     Indication: DIFFUSE LARGE B-CELL LYMPHOMA
     Route: 042
     Dates: start: 20180627
  7. NOVORAPID [Concomitant]
     Active Substance: INSULIN ASPART
     Indication: HYPERGLYCAEMIA
     Route: 058
     Dates: start: 20180628, end: 20180714
  8. AMIKACINE [Concomitant]
     Active Substance: AMIKACIN
     Route: 042
     Dates: start: 20180706, end: 20180707
  9. FILGRASTIM [Concomitant]
     Active Substance: FILGRASTIM
     Route: 042
     Dates: start: 20180706, end: 20180710
  10. VANCOMYCINE [Concomitant]
     Active Substance: VANCOMYCIN
     Route: 042
     Dates: start: 20180703, end: 20180713
  11. CHLORHYDRATE DE MORPHINE [Concomitant]
     Active Substance: MORPHINE HYDROCHLORIDE
     Indication: PAIN
     Route: 042
     Dates: start: 20180703, end: 20180713
  12. KAYEXALATE [Concomitant]
     Active Substance: SODIUM POLYSTYRENE SULFONATE
     Indication: HYPERKALAEMIA
     Dosage: DOSE : 1 OTHER
     Route: 048
     Dates: start: 20180628, end: 20180628
  13. FOLINORAL [Concomitant]
     Active Substance: LEUCOVORIN CALCIUM
     Route: 048
     Dates: start: 20180712
  14. CEFTAZIDIME. [Concomitant]
     Active Substance: CEFTAZIDIME
     Route: 042
     Dates: start: 20180721, end: 20180725
  15. PREDNISOLONE. [Concomitant]
     Active Substance: PREDNISOLONE
     Indication: LYMPHOMA
     Route: 039
     Dates: start: 20180808
  16. PLACEBO [Suspect]
     Active Substance: UNSPECIFIED INGREDIENT
     Indication: DIFFUSE LARGE B-CELL LYMPHOMA
     Dosage: DATE OF MOST RECENT DOSE ADMINISTERED 28/JUN/2018
     Route: 042
     Dates: start: 20180628
  17. PREDNISONE. [Suspect]
     Active Substance: PREDNISONE
     Indication: DIFFUSE LARGE B-CELL LYMPHOMA
     Dosage: DAYS 1?5 OF EVERY 21 DAY CYCLE FOR 6 CYCLES
     Route: 042
     Dates: start: 20180627
  18. CEFEPIME [Concomitant]
     Active Substance: CEFEPIME HYDROCHLORIDE
     Route: 042
     Dates: start: 20180725, end: 20180803
  19. LASILIX [Concomitant]
     Active Substance: FUROSEMIDE
     Route: 042
     Dates: start: 20180701, end: 20180705
  20. TAMSULOSINE [Concomitant]
     Active Substance: TAMSULOSIN HYDROCHLORIDE
     Indication: PROSTATOMEGALY
     Route: 048
  21. AERIUS [Concomitant]
     Active Substance: DESLORATADINE
     Indication: PREMEDICATION
     Route: 048
     Dates: start: 20180627
  22. PARACETAMOL [Concomitant]
     Active Substance: ACETAMINOPHEN
     Indication: PREMEDICATION
     Route: 048
     Dates: start: 20180627
  23. SOLU?MEDROL [Concomitant]
     Active Substance: METHYLPREDNISOLONE SODIUM SUCCINATE
     Route: 050
     Dates: start: 20180808
  24. PLATELETS [Concomitant]
     Active Substance: HUMAN PLATELET, ALLOGENIC
     Dosage: DOSE: 1 OTHER
     Route: 065
     Dates: start: 20180706, end: 20180706
  25. ZYLORIC [Concomitant]
     Active Substance: ALLOPURINOL
     Indication: HYPERURICAEMIA
     Route: 048
     Dates: start: 20180720, end: 20180724
  26. CIPROFLOXACINE [Concomitant]
     Active Substance: CIPROFLOXACIN
     Route: 048
     Dates: start: 20180730, end: 20180803
  27. BACTRIM [Concomitant]
     Active Substance: SULFAMETHOXAZOLE\TRIMETHOPRIM
     Route: 048
     Dates: start: 20180711, end: 20180712
  28. CALCITONINE [Concomitant]
     Indication: OSTEOPOROSIS
     Route: 058
     Dates: start: 20180628, end: 20180630
  29. CALCITONINE [Concomitant]
     Indication: HYPERCALCAEMIA
  30. FASTURTEC [Concomitant]
     Active Substance: RASBURICASE
     Route: 042
     Dates: start: 20180628, end: 20180628
  31. TAZOCILLINE [Concomitant]
     Active Substance: PIPERACILLIN SODIUM\TAZOBACTAM SODIUM
     Route: 042
     Dates: start: 20180703, end: 20180713
  32. MESNA. [Concomitant]
     Active Substance: MESNA
     Indication: PREMEDICATION
     Route: 042
     Dates: start: 20180627
  33. CYCLOPHOSPHAMIDE. [Suspect]
     Active Substance: CYCLOPHOSPHAMIDE
     Indication: DIFFUSE LARGE B-CELL LYMPHOMA
     Route: 042
     Dates: start: 20180628
  34. ACUPAN [Concomitant]
     Active Substance: NEFOPAM HYDROCHLORIDE
     Indication: PAIN
     Route: 042
     Dates: end: 20180714
  35. VANCOMYCINE [Concomitant]
     Active Substance: VANCOMYCIN
     Route: 042
     Dates: start: 20180703, end: 20180703
  36. IMOVANE [Concomitant]
     Active Substance: ZOPICLONE
     Indication: INSOMNIA
     Route: 048
  37. PACKED RED BLOOD CELLS [Concomitant]
     Active Substance: HUMAN RED BLOOD CELL
     Indication: ANAEMIA
     Dosage: DOSE : 3 OTHER
     Route: 042
     Dates: start: 20180701, end: 20180702
  38. METHOTREXATE. [Concomitant]
     Active Substance: METHOTREXATE
     Indication: LYMPHOMA
     Route: 039
     Dates: start: 20180808
  39. OXYCODONE [Concomitant]
     Active Substance: OXYCODONE
     Route: 048
     Dates: end: 20180703
  40. LASILIX [Concomitant]
     Active Substance: FUROSEMIDE
     Route: 048
     Dates: start: 20180715, end: 20180716
  41. PANTOPRAZOLE [Concomitant]
     Active Substance: PANTOPRAZOLE
     Indication: PROPHYLAXIS
     Route: 050
     Dates: end: 20180730
  42. PHOSPHORE (FRANCE) [Concomitant]
     Indication: HYPOPHOSPHATAEMIA
     Dosage: 4 AMPULE
     Route: 042
     Dates: start: 20180726
  43. TRAMADOL. [Concomitant]
     Active Substance: TRAMADOL
     Indication: PAIN
     Route: 048
     Dates: start: 20180730
  44. VINCRISTINE [Suspect]
     Active Substance: VINCRISTINE
     Indication: DIFFUSE LARGE B-CELL LYMPHOMA
     Dosage: DATE OF MOST RECENT DOSE OF BLINDED VINCRISTINE PRIOR TO SAE ONSET 28/JUN/2018 ONCE IN 21 DAYS
     Route: 042
     Dates: start: 20180628
  45. ACUPAN [Concomitant]
     Active Substance: NEFOPAM HYDROCHLORIDE
     Route: 048
     Dates: end: 20180714
  46. OXYCODONE [Concomitant]
     Active Substance: OXYCODONE
     Indication: PAIN
     Route: 048
     Dates: end: 20180703
  47. ALBUMINE [Concomitant]
     Active Substance: ALBUMIN HUMAN
     Route: 042
     Dates: start: 20180716, end: 20180718
  48. SOLU?MEDROL [Concomitant]
     Active Substance: METHYLPREDNISOLONE SODIUM SUCCINATE
     Indication: PREMEDICATION
     Route: 042
     Dates: start: 20180627
  49. MORPHINE [Concomitant]
     Active Substance: MORPHINE
     Indication: PAIN
     Route: 048
     Dates: start: 20180714, end: 20180714
  50. MORPHINE [Concomitant]
     Active Substance: MORPHINE
     Route: 048
     Dates: start: 20180714, end: 20180730
  51. PENTACARINAT [Concomitant]
     Active Substance: PENTAMIDINE ISETHIONATE
     Route: 050
     Dates: start: 20180808
  52. IPRATROPIUM [Concomitant]
     Active Substance: IPRATROPIUM
     Indication: PREMEDICATION
     Route: 050
     Dates: start: 20180808
  53. FORTIMEL [Concomitant]
     Active Substance: DIETARY SUPPLEMENT
     Route: 048
     Dates: start: 20180808
  54. DOXORUBICIN [Suspect]
     Active Substance: DOXORUBICIN
     Indication: DIFFUSE LARGE B-CELL LYMPHOMA
     Route: 042
     Dates: start: 20180628
  55. ZOMETA [Concomitant]
     Active Substance: ZOLEDRONIC ACID
     Indication: OSTEOPOROSIS
     Route: 042
     Dates: start: 20180622, end: 20180622
  56. AUGMENTIN [Concomitant]
     Active Substance: AMOXICILLIN\CLAVULANATE POTASSIUM
     Route: 042
     Dates: start: 20180622, end: 20180627
  57. SOLU?MEDROL [Concomitant]
     Active Substance: METHYLPREDNISOLONE SODIUM SUCCINATE
     Route: 042
     Dates: start: 20180520, end: 20180624
  58. ZOPHREN [Concomitant]
     Active Substance: ONDANSETRON
     Indication: PREMEDICATION
     Route: 050
     Dates: start: 20180627
  59. BINOCRIT [Concomitant]
     Active Substance: ERYTHROPOIETIN
     Indication: ANAEMIA
     Route: 058
     Dates: start: 20180702
  60. ZELITREX [Concomitant]
     Active Substance: VALACYCLOVIR HYDROCHLORIDE
     Route: 048
     Dates: start: 20180710
  61. PARAFFIN [Concomitant]
     Active Substance: PARAFFIN
     Indication: CONSTIPATION
     Dosage: DOSE: 1 OTHER
     Route: 048
     Dates: start: 20180713, end: 20180724
  62. XANAX [Concomitant]
     Active Substance: ALPRAZOLAM
     Indication: ANXIETY
     Route: 048
     Dates: start: 20180803, end: 20180803
  63. SODIUM BICARBONATE. [Concomitant]
     Active Substance: SODIUM BICARBONATE
     Route: 048
     Dates: start: 20180808

REACTIONS (1)
  - Hyponatraemia [Unknown]

NARRATIVE: CASE EVENT DATE: 20180711
